FAERS Safety Report 17861203 (Version 2)
Quarter: 2020Q4

REPORT INFORMATION
  Report Type: Spontaneous
  Country: US (occurrence: US)
  Receive Date: 20200604
  Receipt Date: 20201204
  Transmission Date: 20210113
  Serious: No
  Sender: FDA-Public Use
  Company Number: US-HARMONY BIOSCIENCES-2020HMY00156

PATIENT
  Age: 35 Year
  Sex: Female

DRUGS (2)
  1. WAKIX [Suspect]
     Active Substance: PITOLISANT HYDROCHLORIDE
     Indication: NARCOLEPSY
     Dosage: 35.6 MG /DAY
     Route: 048
     Dates: start: 20191213, end: 20191225
  2. WAKIX [Suspect]
     Active Substance: PITOLISANT HYDROCHLORIDE
     Dosage: 17.8 MG 1X/DAY
     Route: 048
     Dates: start: 20191226

REACTIONS (3)
  - Headache [Unknown]
  - Anxiety [Unknown]
  - Tension headache [Unknown]

NARRATIVE: CASE EVENT DATE: 202008
